FAERS Safety Report 5270959-1 (Version None)
Quarter: 2007Q1

REPORT INFORMATION
  Report Type: 
  Country: None (occurrence: None)
  Receive Date: 20061214
  Receipt Date: 20051006
  Transmission Date: 20070707
  Serious: Yes (Other)
  Sender: FDA-Public Use
  Company Number: 2005169444

PATIENT
  Age: 54 Year
  Sex: Female

DRUGS (2)
  1. BEXTRA [Suspect]
     Indication: LIMB INJURY
     Dosage: 20 MG (1 D)
     Dates: start: 20041101
  2. DICLOXACILLIN [Suspect]
     Indication: BREAST ABSCESS
     Dates: start: 20041101

REACTIONS (1)
  - DERMATITIS ALLERGIC [None]
